FAERS Safety Report 21631662 (Version 1)
Quarter: 2022Q4

REPORT INFORMATION
  Report Type: Spontaneous
  Country: ID (occurrence: ID)
  Receive Date: 20221123
  Receipt Date: 20221123
  Transmission Date: 20230113
  Serious: Yes (Other)
  Sender: FDA-Public Use
  Company Number: ID-SUN PHARMACEUTICAL INDUSTRIES LTD-2022R1-364849

PATIENT
  Age: 29 Year
  Sex: Female

DRUGS (2)
  1. METHIMAZOLE [Suspect]
     Active Substance: METHIMAZOLE
     Indication: Hyperthyroidism
     Dosage: 20 MILLIGRAM, DAILY
     Route: 065
  2. PROPRANOLOL [Concomitant]
     Active Substance: PROPRANOLOL HYDROCHLORIDE
     Indication: Hyperthyroidism
     Dosage: 20 MILLIGRAM, TID
     Route: 065

REACTIONS (1)
  - Agranulocytosis [Recovered/Resolved]
